FAERS Safety Report 6213455-7 (Version None)
Quarter: 2009Q2

REPORT INFORMATION
  Report Type: 
  Country: None (occurrence: None)
  Receive Date: 20090603
  Receipt Date: 20090527
  Transmission Date: 20091009
  Serious: Yes (Hospitalization)
  Sender: FDA-Public Use
  Company Number: NL-BAYER-200921925GPV

PATIENT
  Age: 67 Year
  Sex: Male

DRUGS (7)
  1. CIPROFLOXACIN HCL [Suspect]
     Indication: CYSTITIS
     Route: 065
     Dates: start: 20090429, end: 20090505
  2. IBUPROFEN [Concomitant]
     Indication: DRUG USE FOR UNKNOWN INDICATION
     Dosage: UNIT DOSE: 600 MG
     Route: 048
     Dates: start: 20090429, end: 20090429
  3. AUGMENTIN [Concomitant]
     Indication: CYSTITIS
     Dosage: UNIT DOSE: 1 DF
     Route: 048
     Dates: start: 20090508, end: 20090501
  4. OMEPRAZOL [Concomitant]
     Indication: DRUG USE FOR UNKNOWN INDICATION
     Route: 048
  5. OMEPRAZOL [Concomitant]
     Dosage: DURING HOSPITALISATION
     Route: 048
  6. FRAGMIN [Concomitant]
     Indication: ANTICOAGULANT THERAPY
     Route: 058
  7. AVODART [Concomitant]
     Indication: BENIGN PROSTATIC HYPERPLASIA
     Route: 065

REACTIONS (5)
  - ACUTE GENERALISED EXANTHEMATOUS PUSTULOSIS [None]
  - ANOREXIA [None]
  - FATIGUE [None]
  - PYREXIA [None]
  - RASH [None]
